FAERS Safety Report 11794136 (Version 1)
Quarter: 2015Q4

REPORT INFORMATION
  Report Type: Spontaneous
  Country: SG (occurrence: SG)
  Receive Date: 20151202
  Receipt Date: 20151202
  Transmission Date: 20160305
  Serious: Yes (Death, Hospitalization, Other)
  Sender: FDA-Public Use
  Company Number: SG-HQ SPECIALTY-SG-2015INT000647

PATIENT
  Age: 32 Year
  Sex: Female

DRUGS (2)
  1. CISPLATIN. [Suspect]
     Active Substance: CISPLATIN
     Indication: SQUAMOUS CELL CARCINOMA
     Dosage: 100 MG/M2, UNK, SINGLE DOSE
  2. CISPLATIN. [Suspect]
     Active Substance: CISPLATIN
     Indication: SQUAMOUS CELL CARCINOMA OF HEAD AND NECK

REACTIONS (8)
  - Lung abscess [Unknown]
  - Bone marrow failure [Fatal]
  - Pulmonary alveolar haemorrhage [Fatal]
  - Necrotising colitis [Unknown]
  - Aspergilloma [Unknown]
  - Multi-organ failure [Unknown]
  - Neutropenic sepsis [Unknown]
  - Fungal infection [Unknown]
